FAERS Safety Report 4480387-4 (Version None)
Quarter: 2004Q4

REPORT INFORMATION
  Report Type: 
  Country: None (occurrence: None)
  Receive Date: 20041018
  Receipt Date: 20041008
  Transmission Date: 20050328
  Serious: Yes (Death, Life-Threatening)
  Sender: FDA-Public Use
  Company Number: 200410516BFR

PATIENT
  Age: 67 Year
  Sex: Male

DRUGS (10)
  1. CIPROFLOXACIN HCL [Suspect]
     Indication: LUNG DISORDER
     Dosage: 500 MG, TOTAL DAILY, ORAL
     Route: 048
     Dates: start: 20040907
  2. ROCEPHIN [Suspect]
     Dosage: 2 G, TOTAL DAILY, INTRAVENOUS
     Route: 042
     Dates: start: 20040906, end: 20040907
  3. CORGARD [Suspect]
     Dosage: 80 MG, TOTAL DAILY, ORAL
     Route: 048
     Dates: end: 20040916
  4. FUROSEMIDE [Suspect]
     Dosage: 500 MG, TOTAL DAILY, ORAL
     Route: 048
     Dates: end: 20040913
  5. TAZOCILLINE [Suspect]
     Dosage: 8 G, TOTAL DAILY, ORAL
     Route: 048
     Dates: start: 20040907, end: 20040915
  6. AMIKACIN [Suspect]
     Dosage: INTERAVENOUS
     Route: 042
     Dates: start: 20040906, end: 20040907
  7. DOXIUM [Concomitant]
  8. MOPRAL [Concomitant]
  9. CALCIDIA [Concomitant]
  10. TIENAM [Concomitant]

REACTIONS (4)
  - CONDITION AGGRAVATED [None]
  - PLEURISY [None]
  - SALMONELLA SEPSIS [None]
  - THROMBOCYTOPENIA [None]
